FAERS Safety Report 8972380 (Version 2)
Quarter: 2013Q1

REPORT INFORMATION
  Report Type: Spontaneous
  Country: US (occurrence: US)
  Receive Date: 20121219
  Receipt Date: 20130108
  Transmission Date: 20140127
  Serious: Yes (Other)
  Sender: FDA-Public Use
  Company Number: US-BAYER-2012-132325

PATIENT
  Age: 46 Year
  Sex: Female
  Weight: 78.46 kg

DRUGS (2)
  1. MIRENA [Suspect]
     Indication: MENORRHAGIA
     Dosage: 20 MCG/24HR, CONT
     Route: 015
     Dates: start: 20121206, end: 20121206
  2. MIRENA [Suspect]
     Indication: CONTRACEPTION

REACTIONS (3)
  - Muscle spasms [None]
  - Device difficult to use [Recovered/Resolved]
  - Device dislocation [None]
